FAERS Safety Report 6490760-0 (Version None)
Quarter: 2009Q4

REPORT INFORMATION
  Report Type: 
  Country: None (occurrence: None)
  Receive Date: 20091211
  Receipt Date: 20091201
  Transmission Date: 20100525
  Serious: Yes (Life-Threatening, Hospitalization, Other)
  Sender: FDA-Public Use
  Company Number: DE-ELI_LILLY_AND_COMPANY-DE200902007651

PATIENT
  Age: 45 Year
  Sex: Male
  Weight: 97.5 kg

DRUGS (4)
  1. LIPROLOG LISPRO [Suspect]
     Indication: TYPE 1 DIABETES MELLITUS
     Dosage: UNK, 3/D
     Route: 058
     Dates: start: 20070301
  2. LIPROLOG LISPRO [Suspect]
     Dosage: UNK, 3/D
     Route: 058
  3. LANTUS [Concomitant]
     Indication: TYPE 1 DIABETES MELLITUS
     Dosage: 11 IU, DAILY (1/D)
     Route: 058
     Dates: start: 20070301, end: 20091001
  4. LANTUS [Concomitant]
     Dosage: 18 IU, DAILY (1/D)
     Route: 058
     Dates: start: 20091003

REACTIONS (2)
  - HYPOGLYCAEMIA [None]
  - LOSS OF CONSCIOUSNESS [None]
